FAERS Safety Report 7394401-X (Version None)
Quarter: 2011Q2

REPORT INFORMATION
  Report Type: 
  Country: None (occurrence: None)
  Receive Date: 20110405
  Receipt Date: 20110322
  Transmission Date: 20111010
  Serious: No
  Sender: FDA-Public Use
  Company Number: PHHY2011US12539

PATIENT
  Sex: Female

DRUGS (11)
  1. COREG [Concomitant]
     Dosage: 25 MG, UNK
  2. NOVOLOG [Concomitant]
     Dosage: 100 UG/ML, UNK
  3. LISINOPRIL [Concomitant]
  4. GABAPENTIN [Concomitant]
  5. TASIGNA [Suspect]
     Dosage: 300 MG, BID
     Route: 048
     Dates: start: 20100817
  6. VALIUM [Concomitant]
  7. PAXIL [Concomitant]
  8. TASIGNA [Suspect]
     Dosage: 150 MG, BID
     Route: 048
     Dates: start: 20100901
  9. LEVEMIR [Concomitant]
     Dosage: 100 UG/ML, UNK
  10. CARVEDILOL [Concomitant]
  11. ASPIRIN [Concomitant]
     Dosage: 81 MG, UNK

REACTIONS (4)
  - ALOPECIA [None]
  - ACNE [None]
  - PILOERECTION [None]
  - SKIN DISORDER [None]
